FAERS Safety Report 24735489 (Version 1)
Quarter: 2024Q4

REPORT INFORMATION
  Report Type: Spontaneous
  Country: ES (occurrence: ES)
  Receive Date: 20241216
  Receipt Date: 20241216
  Transmission Date: 20250114
  Serious: Yes (Other)
  Sender: ALEXION PHARMACEUTICALS
  Company Number: ES-ASTRAZENECA-202412EEA007100ES

PATIENT

DRUGS (8)
  1. DURVALUMAB [Suspect]
     Active Substance: DURVALUMAB
     Dosage: UNK
     Route: 065
  2. DURVALUMAB [Suspect]
     Active Substance: DURVALUMAB
     Dosage: UNK
     Route: 065
  3. DURVALUMAB [Suspect]
     Active Substance: DURVALUMAB
     Dosage: UNK
     Route: 065
  4. DURVALUMAB [Suspect]
     Active Substance: DURVALUMAB
     Dosage: UNK
     Route: 065
  5. TREMELIMUMAB [Suspect]
     Active Substance: TREMELIMUMAB
     Route: 065
  6. TREMELIMUMAB [Suspect]
     Active Substance: TREMELIMUMAB
     Route: 065
  7. TREMELIMUMAB [Suspect]
     Active Substance: TREMELIMUMAB
     Route: 065
  8. TREMELIMUMAB [Suspect]
     Active Substance: TREMELIMUMAB
     Route: 065

REACTIONS (3)
  - Encephalitis [Unknown]
  - Nephritis [Unknown]
  - Coma [Recovered/Resolved]
